FAERS Safety Report 8478686-4 (Version None)
Quarter: 2012Q2

REPORT INFORMATION
  Report Type: 
  Country: None (occurrence: None)
  Receive Date: 20120629
  Receipt Date: 20120627
  Transmission Date: 20120825
  Serious: Yes (Death, Other)
  Sender: FDA-Public Use
  Company Number: US-ROCHE-1074851

PATIENT
  Sex: Male

DRUGS (1)
  1. ZELBORAF [Suspect]
     Indication: PRODUCT USED FOR UNKNOWN INDICATION

REACTIONS (10)
  - ERYTHEMA [None]
  - DECREASED APPETITE [None]
  - SWELLING [None]
  - BLINDNESS [None]
  - ASTHENIA [None]
  - DIPLOPIA [None]
  - OEDEMA PERIPHERAL [None]
  - BURNING SENSATION [None]
  - DEATH [None]
  - RASH [None]
